FAERS Safety Report 9158633 (Version 2)
Quarter: 2013Q1

REPORT INFORMATION
  Report Type: Spontaneous
  Country: IT (occurrence: IT)
  Receive Date: 20130312
  Receipt Date: 20130325
  Transmission Date: 20140127
  Serious: Yes (Hospitalization)
  Sender: FDA-Public Use
  Company Number: PHHY2013IT023374

PATIENT
  Sex: Female

DRUGS (3)
  1. RAMIPRIL [Suspect]
     Dosage: 5 MG, QD
     Route: 048
     Dates: start: 20130227, end: 20130227
  2. PROPAFENONE [Suspect]
     Dosage: 150 MG, QD
     Route: 048
     Dates: start: 20130227, end: 20130227
  3. EUTIROX [Suspect]
     Dosage: 75 UG, QD
     Route: 048
     Dates: start: 20130227, end: 20130227

REACTIONS (2)
  - Medication error [Recovered/Resolved]
  - Vomiting [Recovered/Resolved]
